FAERS Safety Report 10469453 (Version 1)
Quarter: 2014Q3

REPORT INFORMATION
  Report Type: Spontaneous
  Country: PL (occurrence: PL)
  Receive Date: 20140923
  Receipt Date: 20140923
  Transmission Date: 20150326
  Serious: Yes (Death, Hospitalization)
  Sender: FDA-Public Use
  Company Number: PL-TEVA-510140ISR

PATIENT
  Age: 82 Year
  Sex: Male

DRUGS (1)
  1. METFORMAX [Suspect]
     Active Substance: METFORMIN HYDROCHLORIDE
     Route: 048

REACTIONS (10)
  - Loss of consciousness [Fatal]
  - Hyperglycaemia [Fatal]
  - Metabolic acidosis [Fatal]
  - Anuria [Fatal]
  - Respiratory failure [Fatal]
  - Circulatory collapse [Fatal]
  - Multi-organ failure [Fatal]
  - Toxicity to various agents [Fatal]
  - Hypoglycaemia [Fatal]
  - Aggression [Fatal]
